FAERS Safety Report 11532216 (Version 1)
Quarter: 2015Q3

REPORT INFORMATION
  Report Type: Spontaneous
  Country: US (occurrence: US)
  Receive Date: 20150921
  Receipt Date: 20150921
  Transmission Date: 20151125
  Serious: Yes (Other)
  Sender: FDA-Public Use
  Company Number: US-TAKEDA-TPA2013A06463

PATIENT

DRUGS (8)
  1. REZULIN [Concomitant]
     Active Substance: TROGLITAZONE
     Dosage: UNK
  2. AVANDIA [Concomitant]
     Active Substance: ROSIGLITAZONE MALEATE
     Dosage: 4 MG, QD
     Dates: start: 2005, end: 2007
  3. AMARYL [Concomitant]
     Active Substance: GLIMEPIRIDE
     Dosage: 4MG-8MG, QD
     Dates: start: 2002
  4. NOVOLOG [Concomitant]
     Active Substance: INSULIN ASPART
     Indication: DIABETES MELLITUS
     Dosage: 18 IU, TID
     Dates: start: 2012, end: 2014
  5. ACTOS [Suspect]
     Active Substance: PIOGLITAZONE HYDROCHLORIDE
     Indication: TYPE 2 DIABETES MELLITUS
     Dosage: 30MG, 45 MG, UNK
     Route: 048
     Dates: start: 20000327, end: 2008
  6. METFORMIN [Concomitant]
     Active Substance: METFORMIN HYDROCHLORIDE
     Dosage: 850 MG, TID
     Dates: start: 2009
  7. GLUCOTROL [Concomitant]
     Active Substance: GLIPIZIDE
     Dosage: 10 MG, QD
     Dates: start: 2004
  8. LANTUS [Concomitant]
     Active Substance: INSULIN GLARGINE
     Dosage: 80 ML, QD
     Dates: start: 2011

REACTIONS (4)
  - Sexual dysfunction [Unknown]
  - Dyspnoea [Unknown]
  - Hypokinesia [Unknown]
  - Acute myocardial infarction [Unknown]

NARRATIVE: CASE EVENT DATE: 20090126
